FAERS Safety Report 5215996-8 (Version None)
Quarter: 2007Q1

REPORT INFORMATION
  Report Type: 
  Country: None (occurrence: None)
  Receive Date: 20070118
  Receipt Date: 20070105
  Transmission Date: 20070707
  Serious: Yes (Hospitalization)
  Sender: FDA-Public Use
  Company Number: 234285

PATIENT
  Age: 20 Year
  Sex: Female

DRUGS (1)
  1. RITUXAN [Suspect]
     Indication: SYSTEMIC LUPUS ERYTHEMATOSUS
     Dosage: INTRAVENOUS
     Route: 042
     Dates: start: 20061004

REACTIONS (4)
  - HYPERTENSION [None]
  - LUPUS NEPHRITIS [None]
  - NAUSEA [None]
  - RENAL FAILURE [None]
